FAERS Safety Report 7817283-8 (Version None)
Quarter: 2011Q4

REPORT INFORMATION
  Report Type: 
  Country: None (occurrence: None)
  Receive Date: 20111017
  Receipt Date: 20111012
  Transmission Date: 20120403
  Serious: Yes (Death)
  Sender: FDA-Public Use
  Company Number: US-PFIZER INC-2011239174

PATIENT
  Sex: Female
  Weight: 111.2 kg

DRUGS (14)
  1. NORVASC [Concomitant]
     Indication: HYPERTENSION
     Dosage: UNK
     Route: 048
  2. FERROUS SULFATE [Concomitant]
     Indication: MINERAL SUPPLEMENTATION
     Dosage: UNK
     Route: 048
     Dates: start: 20110804
  3. AMBIEN CR [Concomitant]
     Indication: SLEEP DISORDER
     Dosage: UNK
     Route: 048
  4. ALPRAZOLAM [Concomitant]
     Indication: ANXIETY
     Dosage: UNK
     Route: 048
     Dates: start: 20110822
  5. ESOMEPRAZOLE [Concomitant]
     Indication: GASTROOESOPHAGEAL REFLUX DISEASE
     Dosage: UNK
     Route: 048
  6. CRIZOTINIB [Suspect]
     Indication: LUNG NEOPLASM MALIGNANT
     Dosage: 250 MG, 2X/DAY
     Route: 048
     Dates: start: 20110511
  7. SIMVASTATIN [Concomitant]
     Indication: HYPERCHOLESTEROLAEMIA
     Dosage: UNK
     Route: 048
  8. HYDROMORPHONE [Concomitant]
     Indication: PAIN
     Dosage: UNK
     Route: 048
     Dates: start: 20110822
  9. PERI-COLACE [Concomitant]
     Indication: CONSTIPATION
     Dosage: UNK
     Route: 048
     Dates: start: 20110822
  10. DULCOLAX [Concomitant]
     Indication: CONSTIPATION
     Dosage: UNK
     Route: 048
  11. DIOVAN [Concomitant]
     Indication: HYPERTENSION
     Dosage: UNK
     Route: 048
  12. ALPRAZOLAM [Concomitant]
     Indication: SLEEP DISORDER
  13. ESCITALOPRAM [Concomitant]
     Indication: DEPRESSION
     Dosage: UNK
     Route: 048
  14. DETROL LA [Concomitant]
     Indication: INCONTINENCE
     Dosage: UNK
     Route: 048

REACTIONS (4)
  - PAIN [None]
  - CONSTIPATION [None]
  - ANXIETY [None]
  - DEATH [None]
